FAERS Safety Report 10182329 (Version 2)
Quarter: 2014Q2

REPORT INFORMATION
  Report Type: Spontaneous
  Country: GB (occurrence: None)
  Receive Date: 20140516
  Receipt Date: 20140611
  Transmission Date: 20141212
  Serious: Yes (Death, Hospitalization)
  Sender: FDA-Public Use
  Company Number: KAD201405-000489

PATIENT
  Age: 52 Year
  Sex: Male

DRUGS (2)
  1. RIBAVIRIN (RIBAVIRIN) [Suspect]
     Indication: HEPATITIS E
  2. RIBAVIRIN (RIBAVIRIN) [Suspect]
     Indication: HIV INFECTION

REACTIONS (8)
  - Bacteraemia [None]
  - Renal failure acute [None]
  - Gastrointestinal haemorrhage [None]
  - Hepatic cirrhosis [None]
  - Sepsis [None]
  - Urinary tract infection [None]
  - Disease recurrence [None]
  - Off label use [None]
